FAERS Safety Report 23624383 (Version 2)
Quarter: 2024Q2

REPORT INFORMATION
  Report Type: Spontaneous
  Country: JP (occurrence: JP)
  Receive Date: 20240312
  Receipt Date: 20240409
  Transmission Date: 20240716
  Serious: Yes (Other)
  Sender: FDA-Public Use
  Company Number: JP-MLMSERVICE-20240228-4855177-1

PATIENT
  Age: 60 Year
  Sex: Male
  Weight: 79.6 kg

DRUGS (8)
  1. PACLITAXEL [Suspect]
     Active Substance: PACLITAXEL
     Indication: Metastases to liver
     Dosage: 195 MG/BODY (100 MG/M2), WAS DISSOLVED IN SALINE SOLUTION.
     Dates: end: 202012
  2. PACLITAXEL [Suspect]
     Active Substance: PACLITAXEL
     Indication: Non-small cell lung cancer recurrent
     Dosage: 195 MG/BODY (100 MG/M2), WAS DISSOLVED IN SALINE SOLUTION.
     Dates: start: 20201112, end: 202012
  3. PACLITAXEL [Suspect]
     Active Substance: PACLITAXEL
     Indication: Lung adenocarcinoma stage III
  4. PACLITAXEL [Suspect]
     Active Substance: PACLITAXEL
     Indication: Gastrointestinal neoplasm
  5. CARBOPLATIN [Suspect]
     Active Substance: CARBOPLATIN
     Indication: Gastrointestinal neoplasm
     Dosage: 670 MG/BODY (AUC=6), DILUTED INTO 250 ML OF SALINE SOLUTION
     Dates: start: 20201112, end: 202012
  6. CARBOPLATIN [Suspect]
     Active Substance: CARBOPLATIN
     Indication: Lung adenocarcinoma stage III
     Dosage: 670 MG/BODY (AUC=6), DILUTED INTO 250 ML OF SALINE SOLUTION
     Dates: end: 202012
  7. CARBOPLATIN [Suspect]
     Active Substance: CARBOPLATIN
     Indication: Metastases to liver
  8. CARBOPLATIN [Suspect]
     Active Substance: CARBOPLATIN
     Indication: Non-small cell lung cancer recurrent

REACTIONS (2)
  - Gastroenteritis viral [Recovering/Resolving]
  - Neutropenia [Recovered/Resolved]

NARRATIVE: CASE EVENT DATE: 20201204
